FAERS Safety Report 25201202 (Version 1)
Quarter: 2025Q2

REPORT INFORMATION
  Report Type: Report from Study
  Country: DE (occurrence: DE)
  Receive Date: 20250416
  Receipt Date: 20250416
  Transmission Date: 20250717
  Serious: Yes (Death)
  Sender: JOHNSON AND JOHNSON
  Company Number: DE-BAYER-2025A049331

PATIENT
  Age: 74 Year
  Sex: Female

DRUGS (1)
  1. VENTAVIS [Suspect]
     Active Substance: ILOPROST
     Indication: Pulmonary arterial hypertension
     Route: 055
     Dates: start: 20170101, end: 20250409

REACTIONS (1)
  - Death [Fatal]

NARRATIVE: CASE EVENT DATE: 20250410
